FAERS Safety Report 24747242 (Version 1)
Quarter: 2024Q4

REPORT INFORMATION
  Report Type: Spontaneous
  Country: DE (occurrence: DE)
  Receive Date: 20241218
  Receipt Date: 20241218
  Transmission Date: 20250114
  Serious: Yes (Life-Threatening, Hospitalization, Other)
  Sender: AUROBINDO
  Company Number: DE-ROCHE-3369418

PATIENT
  Age: 50 Year
  Sex: Male

DRUGS (4)
  1. CARBOPLATIN [Suspect]
     Active Substance: CARBOPLATIN
     Indication: Diffuse large B-cell lymphoma
     Dosage: 756 MILLIGRAM, CYCLICAL
     Route: 042
     Dates: start: 20230608, end: 20230608
  2. ETOPOSIDE [Suspect]
     Active Substance: ETOPOSIDE
     Indication: Diffuse large B-cell lymphoma
     Dosage: 231 MILLIGRAM, ONCE A DAY
     Route: 042
     Dates: start: 20230607, end: 20230610
  3. IFOSFAMIDE [Suspect]
     Active Substance: IFOSFAMIDE
     Indication: Diffuse large B-cell lymphoma
     Dosage: 1150 MILLIGRAM, CYCLICAL
     Route: 042
     Dates: start: 20230608, end: 20230609
  4. RITUXIMAB [Suspect]
     Active Substance: RITUXIMAB
     Indication: Diffuse large B-cell lymphoma
     Dosage: 866 MILLIGRAM, CYCLICAL
     Route: 042
     Dates: start: 20230607, end: 20230607

REACTIONS (1)
  - Sepsis [Recovered/Resolved]

NARRATIVE: CASE EVENT DATE: 20230609
